FAERS Safety Report 20070733 (Version 1)
Quarter: 2021Q4

REPORT INFORMATION
  Report Type: Spontaneous
  Country: US (occurrence: None)
  Receive Date: 20211115
  Receipt Date: 20211115
  Transmission Date: 20220303
  Serious: Yes (Life-Threatening, Hospitalization, Other)
  Sender: FDA-Public Use
  Company Number: None

PATIENT
  Age: 66 Year
  Sex: Male
  Weight: 102.6 kg

DRUGS (8)
  1. DUPILUMAB [Suspect]
     Active Substance: DUPILUMAB
     Indication: Dermatitis atopic
     Dosage: OTHER FREQUENCY : ONE TIME DOSE;?
     Route: 058
     Dates: start: 20211112, end: 20211112
  2. acetaminophen 1000 mg bid [Concomitant]
  3. apixaban 5 mg bid [Concomitant]
  4. aspirin 81 mg q day [Concomitant]
  5. atorvastatin 80 mg q day [Concomitant]
  6. metoprolol succinate 25 mg q day [Concomitant]
  7. triamcinolone 0.1% ointment bid prn [Concomitant]
  8. ceterizine 10 mg q day [Concomitant]

REACTIONS (8)
  - Treatment failure [None]
  - Anaphylactic reaction [None]
  - Product dispensing error [None]
  - Incorrect dose administered [None]
  - Hypotension [None]
  - Hypoxia [None]
  - Pruritus [None]
  - Urticaria [None]

NARRATIVE: CASE EVENT DATE: 20211112
